FAERS Safety Report 16469587 (Version 1)
Quarter: 2019Q2

REPORT INFORMATION
  Report Type: Spontaneous
  Country: IT (occurrence: IT)
  Receive Date: 20190624
  Receipt Date: 20190624
  Transmission Date: 20190711
  Serious: Yes (Hospitalization)
  Sender: FDA-Public Use
  Company Number: IT-OXFORD PHARMACEUTICALS, LLC-2019OXF00100

PATIENT
  Age: 7 Year
  Weight: 18 kg

DRUGS (9)
  1. BACLOFEN. [Suspect]
     Active Substance: BACLOFEN
     Dosage: 500 ?G, 1X/DAY
  2. BACLOFEN. [Suspect]
     Active Substance: BACLOFEN
     Dosage: 400 ?G, 1X/DAY
  3. BACLOFEN. [Suspect]
     Active Substance: BACLOFEN
     Dosage: 1000 ?G, 1X/DAY
  4. BENZODIAZEPINE(S) [Concomitant]
     Route: 065
  5. DIAZEPAM. [Concomitant]
     Active Substance: DIAZEPAM
     Route: 065
  6. BACLOFEN. [Suspect]
     Active Substance: BACLOFEN
     Dosage: 1700 ?G, 1X/DAY
  7. BACLOFEN. [Suspect]
     Active Substance: BACLOFEN
     Indication: MUSCLE SPASTICITY
     Dosage: UNK
  8. BACLOFEN. [Suspect]
     Active Substance: BACLOFEN
     Dosage: 800 ?G, 1X/DAY
  9. BACLOFEN. [Suspect]
     Active Substance: BACLOFEN
     Dosage: 700 ?G, 1X/DAY

REACTIONS (2)
  - Lethargy [Recovered/Resolved]
  - Neurotoxicity [Recovered/Resolved]
